FAERS Safety Report 17716176 (Version 4)
Quarter: 2021Q4

REPORT INFORMATION
  Report Type: Other
  Country: US (occurrence: None)
  Receive Date: 20200428
  Receipt Date: 20211202
  Transmission Date: 20220303
  Serious: Yes (Hospitalization)
  Sender: FDA-Public Use
  Company Number: US-ROCHE-2576472

PATIENT
  Sex: Female
  Weight: 56.750 kg

DRUGS (6)
  1. OCREVUS [Suspect]
     Active Substance: OCRELIZUMAB
     Indication: Multiple sclerosis
     Dosage: THE SUBSEQUENT DOSES OF OCRELIZUMAB: 13/SEP/2019, 28/OCT/2019, 22/MAR/2019, 26/APR/2019
     Route: 042
  2. OCREVUS [Suspect]
     Active Substance: OCRELIZUMAB
     Indication: Relapsing-remitting multiple sclerosis
     Route: 042
     Dates: start: 20190322
  3. OCREVUS [Suspect]
     Active Substance: OCRELIZUMAB
     Route: 042
  4. LIPITOR [Concomitant]
     Active Substance: ATORVASTATIN CALCIUM
  5. LOPRESSOR [Concomitant]
     Active Substance: METOPROLOL TARTRATE
  6. PLAVIX [Concomitant]
     Active Substance: CLOPIDOGREL BISULFATE

REACTIONS (9)
  - Intervertebral disc protrusion [Recovered/Resolved]
  - Myocardial infarction [Recovered/Resolved]
  - Arterial occlusive disease [Recovered/Resolved]
  - Blood cholesterol increased [Unknown]
  - Mental impairment [Unknown]
  - Memory impairment [Unknown]
  - Joint dislocation [Unknown]
  - Adverse drug reaction [Recovered/Resolved]
  - Antibody test negative [Unknown]

NARRATIVE: CASE EVENT DATE: 20200101
